FAERS Safety Report 25302166 (Version 1)
Quarter: 2025Q2

REPORT INFORMATION
  Report Type: Spontaneous
  Country: US (occurrence: US)
  Receive Date: 20250512
  Receipt Date: 20250512
  Transmission Date: 20250717
  Serious: No
  Sender: DR REDDYS
  Company Number: US-DRL-USA-USA/2025/05/006706

PATIENT

DRUGS (3)
  1. ACCUTANE [Suspect]
     Active Substance: ISOTRETINOIN
     Indication: Product used for unknown indication
  2. ACCUTANE [Suspect]
     Active Substance: ISOTRETINOIN
  3. ACCUTANE [Suspect]
     Active Substance: ISOTRETINOIN

REACTIONS (1)
  - Arthralgia [Unknown]
